FAERS Safety Report 15804607 (Version 1)
Quarter: 2019Q1

REPORT INFORMATION
  Report Type: Spontaneous
  Country: US (occurrence: US)
  Receive Date: 20190109
  Receipt Date: 20190109
  Transmission Date: 20190417
  Serious: No
  Sender: FDA-Public Use
  Company Number: US-SLATE RUN PHARMACEUTICALS-SLTR-AE-18-16

PATIENT
  Age: 70 Year
  Sex: Female

DRUGS (5)
  1. BUPROPION HYDROCHLORIDE ER TABLET USP [Suspect]
     Active Substance: BUPROPION HYDROCHLORIDE
     Indication: DEPRESSION
  2. SERTRALINE [Concomitant]
     Active Substance: SERTRALINE HYDROCHLORIDE
  3. BUPROPION HYDROCHLORIDE ER TABLET USP [Suspect]
     Active Substance: BUPROPION HYDROCHLORIDE
     Indication: DEPRESSION
  4. DELAYED-RELEASE ASPIRIN [Concomitant]
  5. IBANDRONATE [Concomitant]
     Active Substance: IBANDRONATE SODIUM

REACTIONS (2)
  - Dry mouth [Unknown]
  - Oral candidiasis [Unknown]
